FAERS Safety Report 4557989-X (Version None)
Quarter: 2005Q1

REPORT INFORMATION
  Report Type: 
  Country: None (occurrence: None)
  Receive Date: 20050121
  Receipt Date: 20040420
  Transmission Date: 20050727
  Serious: Yes (Other)
  Sender: FDA-Public Use
  Company Number: US-BRISTOL-MYERS SQUIBB COMPANY-12566311

PATIENT
  Age: 48 Year
  Sex: Female

DRUGS (10)
  1. SERZONE [Suspect]
     Route: 048
     Dates: start: 19991101, end: 20020101
  2. RISPERIDONE [Concomitant]
  3. VALIUM [Concomitant]
  4. LORTAB [Concomitant]
  5. SOMA [Concomitant]
  6. XANAX [Concomitant]
  7. SYNTHROID [Concomitant]
  8. PREMARIN [Concomitant]
  9. LITHIUM [Concomitant]
  10. WELLBUTRIN [Concomitant]

REACTIONS (3)
  - DIARRHOEA [None]
  - HEPATITIS [None]
  - SYNCOPE [None]
